FAERS Safety Report 9273811 (Version 2)
Quarter: 2013Q3

REPORT INFORMATION
  Report Type: Spontaneous
  Country: US (occurrence: US)
  Receive Date: 20130506
  Receipt Date: 20130723
  Transmission Date: 20140515
  Serious: Yes (Other)
  Sender: FDA-Public Use
  Company Number: US-FRI-1000044841

PATIENT
  Age: 78 Year
  Sex: Male
  Weight: 85.2 kg

DRUGS (2)
  1. BYSTOLIC [Suspect]
     Dosage: 10 MG
     Route: 048
     Dates: start: 20101221, end: 20110430
  2. BYSTOLIC [Suspect]
     Dosage: 5 MG
     Route: 048
     Dates: start: 20110501, end: 20110628

REACTIONS (1)
  - Blue toe syndrome [Recovered/Resolved]
